FAERS Safety Report 11940182 (Version 2)
Quarter: 2016Q2

REPORT INFORMATION
  Report Type: Spontaneous
  Country: US (occurrence: US)
  Receive Date: 20160122
  Receipt Date: 20160428
  Transmission Date: 20160815
  Serious: No
  Sender: FDA-Public Use
  Company Number: US-AKRIMAX-TIR-2016-0020

PATIENT
  Sex: Female
  Weight: 68.1 kg

DRUGS (3)
  1. TIROSINT [Suspect]
     Active Substance: LEVOTHYROXINE SODIUM
     Indication: AUTOIMMUNE THYROIDITIS
     Route: 048
     Dates: start: 201509, end: 201512
  2. TIROSINT [Suspect]
     Active Substance: LEVOTHYROXINE SODIUM
     Indication: AUTOIMMUNE THYROIDITIS
     Dosage: ONE CAPSULE DAILY
     Route: 048
     Dates: start: 201512
  3. YAZ [Concomitant]
     Active Substance: DROSPIRENONE\ETHINYL ESTRADIOL
     Indication: PRODUCT USED FOR UNKNOWN INDICATION

REACTIONS (6)
  - Tremor [Unknown]
  - Eye pain [Unknown]
  - Eye pain [Not Recovered/Not Resolved]
  - Orbital cyst [Unknown]
  - Smear cervix abnormal [Unknown]
  - Feeling jittery [Unknown]

NARRATIVE: CASE EVENT DATE: 2015
